FAERS Safety Report 5204248-8 (Version None)
Quarter: 2007Q1

REPORT INFORMATION
  Report Type: 
  Country: None (occurrence: None)
  Receive Date: 20070110
  Receipt Date: 20060119
  Transmission Date: 20070707
  Serious: No
  Sender: FDA-Public Use
  Company Number: US-BRISTOL-MYERS SQUIBB COMPANY-13254909

PATIENT
  Age: 13 Year
  Sex: Male
  Weight: 68 kg

DRUGS (5)
  1. ABILIFY [Suspect]
     Indication: TOURETTE'S DISORDER
     Dosage: INTERRUPTED ON 12-DEC-2005, THEN REINTRODUCED AT 0.5 MG/D HS ON 20-DEC-2005.
     Route: 048
  2. ALPRAZOLAM [Suspect]
     Indication: ANXIETY
     Route: 048
     Dates: start: 20051212, end: 20051219
  3. CLONAZEPAM [Suspect]
     Dosage: 0.5 MG TAPER STARTED ON 12-DEC-2005; REINTRODUCED IN 0.5 MG INCREMENTS ON 20-DEC-2005
  4. ORAP [Concomitant]
  5. RANITIDINE [Concomitant]

REACTIONS (3)
  - TIC [None]
  - TOURETTE'S DISORDER [None]
  - TREMOR [None]
